FAERS Safety Report 7960603-4 (Version None)
Quarter: 2011Q4

REPORT INFORMATION
  Report Type: 
  Country: None (occurrence: None)
  Receive Date: 20111206
  Receipt Date: 20111202
  Transmission Date: 20120403
  Serious: Yes (Other)
  Sender: FDA-Public Use
  Company Number: GB-MERCK-1112GBR00006

PATIENT
  Sex: Female

DRUGS (9)
  1. FLUOXETINE [Concomitant]
     Route: 065
  2. ACETAMINOPHEN [Concomitant]
     Route: 065
  3. FERROUS FUMARATE [Concomitant]
     Route: 065
  4. ZOCOR [Suspect]
     Indication: CEREBROVASCULAR ACCIDENT PROPHYLAXIS
     Route: 048
     Dates: start: 20111108, end: 20111110
  5. ALBUTEROL [Concomitant]
     Route: 065
  6. CINNARIZINE [Concomitant]
     Route: 065
  7. CALCIUM CARBONATE AND CHOLECALCIFEROL [Concomitant]
     Route: 065
  8. BECLOMETHASONE DIPROPIONATE [Concomitant]
     Route: 065
  9. FOSAMAX [Concomitant]
     Route: 048

REACTIONS (1)
  - AGGRESSION [None]
